FAERS Safety Report 21229146 (Version 3)
Quarter: 2022Q3

REPORT INFORMATION
  Report Type: Report from Study
  Country: US (occurrence: US)
  Receive Date: 20220818
  Receipt Date: 20220908
  Transmission Date: 20221027
  Serious: Yes (Hospitalization, Other)
  Sender: FDA-Public Use
  Company Number: US-ABBVIE-22P-163-4501536-00

PATIENT
  Age: 12 Year
  Sex: Male
  Weight: 30.2 kg

DRUGS (12)
  1. VENETOCLAX [Suspect]
     Active Substance: VENETOCLAX
     Indication: Neoplasm malignant
     Dosage: DOSING LIQUID: 100% APPLE JUICE. ON DAYS 1-10
     Route: 050
     Dates: start: 20220228
  2. CYCLOPHOSPHAMIDE [Suspect]
     Active Substance: CYCLOPHOSPHAMIDE
     Indication: Neoplasm malignant
     Dosage: ON DAYS 1-5 OF EVERY 21 DAYS
     Route: 042
     Dates: start: 20220302
  3. TOPOTECAN HYDROCHLORIDE [Suspect]
     Active Substance: TOPOTECAN HYDROCHLORIDE
     Indication: Neoplasm malignant
     Dosage: ON DAYS 1-5 OF EVERY 21 DAYS
     Route: 042
     Dates: start: 20220302
  4. ONDANSETRON [Concomitant]
     Active Substance: ONDANSETRON
     Indication: Prophylaxis of nausea and vomiting
     Dosage: EVERY 8 HOURS AS NEEDED
     Route: 048
     Dates: start: 20220228
  5. BACTRIM [Concomitant]
     Active Substance: SULFAMETHOXAZOLE\TRIMETHOPRIM
     Indication: Antifungal prophylaxis
     Dosage: 2 TIMES A DAY EVERY SAT AND SUN
     Route: 048
     Dates: start: 20220305
  6. OXYCODONE [Concomitant]
     Active Substance: OXYCODONE
     Indication: Pain prophylaxis
     Dosage: EVERY 6 HOURS AS NEEDED
     Route: 048
     Dates: start: 20220228
  7. PROMETHAZINE [Concomitant]
     Active Substance: PROMETHAZINE HYDROCHLORIDE
     Indication: Prophylaxis of nausea and vomiting
     Dosage: EVERY 6 HOURS
     Route: 048
     Dates: start: 20220228
  8. PROMETHAZINE [Concomitant]
     Active Substance: PROMETHAZINE HYDROCHLORIDE
     Indication: Vomiting
  9. PROMETHAZINE [Concomitant]
     Active Substance: PROMETHAZINE HYDROCHLORIDE
     Indication: Prophylaxis of nausea and vomiting
  10. LORAZEPAM [Concomitant]
     Active Substance: LORAZEPAM
     Indication: Nausea
     Dosage: EVERY 6 HOURS
     Route: 048
     Dates: start: 20220307
  11. LORAZEPAM [Concomitant]
     Active Substance: LORAZEPAM
     Indication: Vomiting
     Dosage: EVERY 6 HOURS
     Route: 042
     Dates: start: 20220420, end: 20220422
  12. LORAZEPAM [Concomitant]
     Active Substance: LORAZEPAM
     Indication: Prophylaxis of nausea and vomiting

REACTIONS (1)
  - Wound [Not Recovered/Not Resolved]

NARRATIVE: CASE EVENT DATE: 20220810
